FAERS Safety Report 6835932-8 (Version None)
Quarter: 2010Q3

REPORT INFORMATION
  Report Type: 
  Country: None (occurrence: None)
  Receive Date: 20100713
  Receipt Date: 20100623
  Transmission Date: 20110219
  Serious: Yes (Hospitalization)
  Sender: FDA-Public Use
  Company Number: A0796448A

PATIENT
  Age: 51 Year
  Sex: Female
  Weight: 90.9 kg

DRUGS (8)
  1. AVANDIA [Suspect]
     Route: 048
     Dates: start: 20000803
  2. ZETIA [Concomitant]
  3. LIPITOR [Concomitant]
  4. TOPROL-XL [Concomitant]
  5. TARKA [Concomitant]
  6. GLUCOVANCE [Concomitant]
  7. TIAZAC [Concomitant]
  8. ZESTRIL [Concomitant]

REACTIONS (3)
  - ACUTE CORONARY SYNDROME [None]
  - CARDIOVASCULAR DISORDER [None]
  - MYOCARDIAL INFARCTION [None]
